FAERS Safety Report 4404149-9 (Version None)
Quarter: 2004Q3

REPORT INFORMATION
  Report Type: 
  Country: None (occurrence: None)
  Receive Date: 20040721
  Receipt Date: 20040721
  Transmission Date: 20050211
  Serious: Yes (Hospitalization, Other)
  Sender: FDA-Public Use
  Company Number: None

PATIENT
  Age: 77 Year
  Sex: Male
  Weight: 72.5755 kg

DRUGS (14)
  1. TAXOL [Suspect]
  2. SIMVASTATIN [Concomitant]
  3. ISOSORBIDE [Concomitant]
  4. CLONIDINE HCL [Concomitant]
  5. ENALAPRIL MALEATE [Concomitant]
  6. ASPIRIN [Concomitant]
  7. FELODIPINE [Concomitant]
  8. ATENOLOL [Concomitant]
  9. MODURETIC 5-50 [Concomitant]
  10. VICODIN [Concomitant]
  11. CLOPOGREL [Concomitant]
  12. AMLODIPINE [Concomitant]
  13. AMILORIDE [Concomitant]
  14. HYDROCHLORIDE [Concomitant]

REACTIONS (5)
  - BLOOD PRESSURE INADEQUATELY CONTROLLED [None]
  - GASTRIC CANCER STAGE 0 [None]
  - HELICOBACTER INFECTION [None]
  - MYOCARDIAL INFARCTION [None]
  - POST PROCEDURAL COMPLICATION [None]
